FAERS Safety Report 23056812 (Version 1)
Quarter: 2023Q4

REPORT INFORMATION
  Report Type: Spontaneous
  Country: US (occurrence: US)
  Receive Date: 20231012
  Receipt Date: 20231012
  Transmission Date: 20240110
  Serious: No
  Sender: FDA-Public Use
  Company Number: US-UNITED THERAPEUTICS-UNT-2023-028792

PATIENT
  Sex: Female

DRUGS (1)
  1. TYVASO DPI [Suspect]
     Active Substance: TREPROSTINIL
     Indication: Product used for unknown indication
     Dosage: UNK

REACTIONS (5)
  - Dizziness [Unknown]
  - Cough [Unknown]
  - Dyspnoea [Unknown]
  - Sinus disorder [Unknown]
  - Sleep disorder [Unknown]
